FAERS Safety Report 6067489-6 (Version None)
Quarter: 2009Q1

REPORT INFORMATION
  Report Type: 
  Country: None (occurrence: None)
  Receive Date: 20090205
  Receipt Date: 20090129
  Transmission Date: 20090719
  Serious: Yes (Hospitalization)
  Sender: FDA-Public Use
  Company Number: GR-ABBOTT-09P-066-0500599-00

PATIENT
  Age: 52 Year
  Sex: Female
  Weight: 79 kg

DRUGS (3)
  1. HUMIRA [Suspect]
     Indication: RHEUMATOID ARTHRITIS
     Route: 058
     Dates: start: 20080618
  2. OLMETEC [Concomitant]
     Indication: HYPERTENSION
     Route: 048
  3. LESCOL XL [Concomitant]
     Indication: DYSLIPIDAEMIA
     Route: 048
     Dates: start: 19980101

REACTIONS (3)
  - ABDOMINAL PAIN UPPER [None]
  - CHOLANGITIS [None]
  - PYREXIA [None]
